FAERS Safety Report 5428853-9 (Version None)
Quarter: 2007Q3

REPORT INFORMATION
  Report Type: 
  Country: None (occurrence: None)
  Receive Date: 20070824
  Receipt Date: 20070817
  Transmission Date: 20080115
  Serious: Yes (Hospitalization)
  Sender: FDA-Public Use
  Company Number: 2007SP016711

PATIENT
  Age: 33 Year
  Sex: Male

DRUGS (1)
  1. DIPROSONE (BETAMETHASONE DIPROPIONATE (TOPICAL)) (BETAMETHASONE DIPROP [Suspect]
     Indication: DERMATITIS ATOPIC
     Dosage: ;TOP
     Route: 061

REACTIONS (2)
  - RASH PUSTULAR [None]
  - SKIN ATROPHY [None]
